FAERS Safety Report 8068586-6 (Version None)
Quarter: 2012Q1

REPORT INFORMATION
  Report Type: 
  Country: None (occurrence: None)
  Receive Date: 20120124
  Receipt Date: 20111110
  Transmission Date: 20120608
  Serious: No
  Sender: FDA-Public Use
  Company Number: US-AMGEN-USASP2011059256

PATIENT
  Age: 48 Year
  Sex: Female

DRUGS (5)
  1. PROLIA [Suspect]
     Indication: OSTEOPOROSIS POSTMENOPAUSAL
     Dosage: 60 MG, Q6MO
     Dates: start: 20110601, end: 20110101
  2. LIPITOR [Concomitant]
     Dosage: UNK
  3. MULTIVITAMIN                       /00097801/ [Concomitant]
  4. VITAMIN B12                        /00056201/ [Concomitant]
  5. VICOPROFEN [Concomitant]
     Indication: PAIN

REACTIONS (2)
  - TOOTH FRACTURE [None]
  - TOOTH ABSCESS [None]
